FAERS Safety Report 12349639 (Version 1)
Quarter: 2016Q2

REPORT INFORMATION
  Report Type: Spontaneous
  Country: US (occurrence: US)
  Receive Date: 20160510
  Receipt Date: 20160510
  Transmission Date: 20160815
  Serious: Yes (Other)
  Sender: FDA-Public Use
  Company Number: US-ROCHE-1750359

PATIENT

DRUGS (1)
  1. AVASTIN [Suspect]
     Active Substance: BEVACIZUMAB
     Indication: RETINAL DISORDER
     Route: 065

REACTIONS (3)
  - Suspected transmission of an infectious agent via product [Unknown]
  - Product contamination [Unknown]
  - Endophthalmitis [Unknown]
